FAERS Safety Report 16642022 (Version 1)
Quarter: 2019Q3

REPORT INFORMATION
  Report Type: Spontaneous
  Country: DE (occurrence: DE)
  Receive Date: 20190729
  Receipt Date: 20190729
  Transmission Date: 20191004
  Serious: Yes (Hospitalization, Other)
  Sender: FDA-Public Use
  Company Number: PHHY2019DE165052

PATIENT
  Sex: Female

DRUGS (4)
  1. ELIQUIS [Suspect]
     Active Substance: APIXABAN
     Indication: DEEP VEIN THROMBOSIS
     Dosage: 20 MG, QD
     Route: 065
     Dates: start: 20190629
  2. ELIQUIS [Suspect]
     Active Substance: APIXABAN
     Dosage: 5 MG, QD
     Route: 065
     Dates: start: 201907
  3. ELIQUIS [Suspect]
     Active Substance: APIXABAN
     Dosage: 10 MG, QD
     Route: 065
  4. HEPARIN [Suspect]
     Active Substance: HEPARIN SODIUM
     Indication: DEEP VEIN THROMBOSIS
     Dosage: UNK
     Route: 065
     Dates: start: 20190624, end: 20190628

REACTIONS (4)
  - Epistaxis [Unknown]
  - Haemothorax [Unknown]
  - Pulmonary embolism [Unknown]
  - Prescribed underdose [Unknown]
